FAERS Safety Report 11086984 (Version 1)
Quarter: 2015Q2

REPORT INFORMATION
  Report Type: Spontaneous
  Country: CN (occurrence: None)
  Receive Date: 20150430
  Receipt Date: 20150430
  Transmission Date: 20150821
  Serious: Yes (Death)
  Sender: FDA-Public Use
  Company Number: FK201501903

PATIENT
  Age: 62 Year
  Sex: Female

DRUGS (4)
  1. CHLORPROMAZINE (CHLORPROMAZINE) [Suspect]
     Active Substance: CHLORPROMAZINE
  2. QUETIAPINE (QUETIAPINE) [Suspect]
     Active Substance: QUETIAPINE
  3. LEVOTHYROXINE SODIUM. [Suspect]
     Active Substance: LEVOTHYROXINE SODIUM
     Indication: PRODUCT USED FOR UNKNOWN INDICATION
  4. DEXTROPROPOXYPHENE/ PARACETAMOL (DI-GESIC /00016701/) [Suspect]
     Active Substance: ACETAMINOPHEN\PROPOXYPHENE HYDROCHLORIDE

REACTIONS (3)
  - Cardiotoxicity [None]
  - Intentional overdose [None]
  - Cardiac arrest [None]
